FAERS Safety Report 7297801-1 (Version None)
Quarter: 2011Q1

REPORT INFORMATION
  Report Type: 
  Country: None (occurrence: None)
  Receive Date: 20110207
  Receipt Date: 20110124
  Transmission Date: 20110831
  Serious: Yes (Hospitalization)
  Sender: FDA-Public Use
  Company Number: JPI-P-013600

PATIENT
  Age: 66 Year
  Sex: Female

DRUGS (8)
  1. CITALOPRAM HYDROCHLORIDE [Concomitant]
  2. SITAGLIPTIN/METFORMIN HYDROCHLORIDE [Concomitant]
  3. ASPIRIN [Concomitant]
  4. XYREM [Suspect]
     Indication: NARCOLEPSY
     Dosage: (4.5 GM (2.25 GM, 2 IN 1 D), ORAL) (7.5 GM (3.75 GM, 2 IN 1 D), ORAL) (6 GM (3 GM, 2 IN 1 D), ORAL)
     Route: 048
     Dates: start: 20101221
  5. XYREM [Suspect]
     Indication: NARCOLEPSY
     Dosage: (4.5 GM (2.25 GM, 2 IN 1 D), ORAL) (7.5 GM (3.75 GM, 2 IN 1 D), ORAL) (6 GM (3 GM, 2 IN 1 D), ORAL)
     Route: 048
     Dates: start: 20090825
  6. XYREM [Suspect]
     Indication: NARCOLEPSY
     Dosage: (4.5 GM (2.25 GM, 2 IN 1 D), ORAL) (7.5 GM (3.75 GM, 2 IN 1 D), ORAL) (6 GM (3 GM, 2 IN 1 D), ORAL)
     Route: 048
     Dates: end: 20100902
  7. XYREM [Suspect]
     Indication: NARCOLEPSY
     Dosage: (4.5 GM (2.25 GM, 2 IN 1 D), ORAL) (7.5 GM (3.75 GM, 2 IN 1 D), ORAL) (6 GM (3 GM, 2 IN 1 D), ORAL)
     Route: 048
     Dates: start: 20100909, end: 20101208
  8. XYREM [Suspect]
     Indication: NARCOLEPSY
     Dosage: (4.5 GM (2.25 GM, 2 IN 1 D), ORAL) (7.5 GM (3.75 GM, 2 IN 1 D), ORAL) (6 GM (3 GM, 2 IN 1 D), ORAL)
     Route: 048
     Dates: start: 20080819, end: 20090824

REACTIONS (3)
  - RECTAL PROLAPSE [None]
  - CARDIAC NEOPLASM UNSPECIFIED [None]
  - TINNITUS [None]
